FAERS Safety Report 21748677 (Version 1)
Quarter: 2022Q4

REPORT INFORMATION
  Report Type: Spontaneous
  Country: US (occurrence: None)
  Receive Date: 20221218
  Receipt Date: 20221218
  Transmission Date: 20230112
  Serious: Yes (Hospitalization, Disabling)
  Sender: FDA-Public Use
  Company Number: None

PATIENT
  Age: 22 Year
  Sex: Male
  Weight: 76.5 kg

DRUGS (5)
  1. FINASTERIDE [Suspect]
     Active Substance: FINASTERIDE
     Indication: Androgenetic alopecia
     Dosage: OTHER QUANTITY : 1 TABLET(S);?FREQUENCY : DAILY;?
     Route: 048
     Dates: start: 20220722, end: 20220729
  2. FINASTERIDE [Suspect]
     Active Substance: FINASTERIDE
     Indication: Androgenetic alopecia
  3. VITAMIN D [Concomitant]
     Active Substance: VITAMIN D NOS
  4. OMEGA 3 EPA [Concomitant]
  5. CREATINE [Concomitant]
     Active Substance: CREATINE

REACTIONS (18)
  - Testicular pain [None]
  - Panic attack [None]
  - Depressed mood [None]
  - Therapeutic product effect incomplete [None]
  - Mood swings [None]
  - Anxiety [None]
  - Anxiety [None]
  - Hyperhidrosis [None]
  - Sleep disorder [None]
  - Muscle twitching [None]
  - Tinnitus [None]
  - Tinnitus [None]
  - Feeling abnormal [None]
  - Mental impairment [None]
  - Disturbance in attention [None]
  - Educational problem [None]
  - Cognitive disorder [None]
  - Drug use disorder [None]

NARRATIVE: CASE EVENT DATE: 20220729
